FAERS Safety Report 8610952-1 (Version None)
Quarter: 2012Q3

REPORT INFORMATION
  Report Type: 
  Country: None (occurrence: None)
  Receive Date: 20120420
  Receipt Date: 20111110
  Transmission Date: 20120928
  Serious: Yes (Hospitalization)
  Sender: FDA-Public Use
  Company Number: WAES 1111USA01513

PATIENT

DRUGS (1)
  1. SINGULAIR [Suspect]
     Dosage: PO
     Route: 048
     Dates: start: 20081101, end: 20111104

REACTIONS (1)
  - CONVULSION [None]
